FAERS Safety Report 21603317 (Version 1)
Quarter: 2022Q4

REPORT INFORMATION
  Report Type: Spontaneous
  Country: US (occurrence: None)
  Receive Date: 20221115
  Receipt Date: 20221115
  Transmission Date: 20230113
  Serious: No
  Sender: FDA-Public Use
  Company Number: None

PATIENT

DRUGS (1)
  1. ALBUMIN HUMAN [Suspect]
     Active Substance: ALBUMIN HUMAN

REACTIONS (5)
  - Product lot number issue [None]
  - Product expiration date issue [None]
  - Product lot number issue [None]
  - Product packaging issue [None]
  - Circumstance or information capable of leading to medication error [None]
